FAERS Safety Report 21164122 (Version 1)
Quarter: 2022Q3

REPORT INFORMATION
  Report Type: Spontaneous
  Country: FR (occurrence: FR)
  Receive Date: 20220803
  Receipt Date: 20220803
  Transmission Date: 20221027
  Serious: Yes (Hospitalization)
  Sender: FDA-Public Use
  Company Number: None

PATIENT
  Age: 61 Year
  Sex: Female

DRUGS (9)
  1. QUETIAPINE [Suspect]
     Active Substance: QUETIAPINE
     Indication: Psychotic disorder
     Dosage: UNIT DOSE : 800 MG, FREQUENCY TIME : 1 DAYS, DURATION : 6 DAYS
     Dates: start: 20220510, end: 20220516
  2. ZOPICLONE [Concomitant]
     Active Substance: ZOPICLONE
     Indication: Product used for unknown indication
     Dosage: THERAPY START DATE : ASKU, UNIT DOSE : 7.5 MG
     Dates: end: 20220516
  3. ACETAMINOPHEN [Concomitant]
     Active Substance: ACETAMINOPHEN
     Indication: Product used for unknown indication
     Dosage: THERAPY START DATE : ASKU, UNIT DOSE :3 GRAM, FREQUENCY TIME : 1 AS REQUIRED
  4. POLYETHYLENE GLYCOLS [Concomitant]
     Active Substance: POLYETHYLENE GLYCOLS
     Indication: Product used for unknown indication
     Dosage: THERAPY START DATE : ASKU, UNIT DOSE :2 DF, FREQUENCY TIME :1 DAYS
     Dates: end: 20220516
  5. LOXAPINE [Concomitant]
     Active Substance: LOXAPINE
     Indication: Product used for unknown indication
     Dosage: STRENGTH :50 MG, UNIT DOSE : 200 MG, FREQUENCY TIME :1 DAY, THERAPY START DATE: ASKU
     Dates: end: 20220516
  6. VALIUM [Concomitant]
     Active Substance: DIAZEPAM
     Indication: Product used for unknown indication
     Dosage: UNIT DOSE : 75 GTT,FREQUENCY TIME :1 DAY,  THERAPY START DATE : ASKU
     Dates: end: 20220516
  7. METFORMIN [Concomitant]
     Active Substance: METFORMIN HYDROCHLORIDE
     Indication: Type 2 diabetes mellitus
     Dosage: UNIT DOSE :1 GRAM, FREQUENCY TIME :1 DAY, THERAPY START DATE : ASKU
     Dates: end: 20220516
  8. AMLODIPINE [Concomitant]
     Active Substance: AMLODIPINE BESYLATE
     Indication: Product used for unknown indication
     Dosage: UNIT DOSE :5 MG, FREQUENCY TIME :1 DAY, THERAPY START DATE : ASKU
     Dates: end: 20220516
  9. ATORVASTATIN [Concomitant]
     Active Substance: ATORVASTATIN
     Indication: Product used for unknown indication
     Dosage: UNIT DOSE :5 MG, FREQUENCY TIME :1 DAY, THERAPY START DATE : ASKU
     Dates: end: 20220516

REACTIONS (2)
  - Urinary retention [Recovered/Resolved]
  - Acute kidney injury [Recovered/Resolved]

NARRATIVE: CASE EVENT DATE: 20220515
